FAERS Safety Report 15755178 (Version 1)
Quarter: 2018Q4

REPORT INFORMATION
  Report Type: Spontaneous
  Country: AT (occurrence: AT)
  Receive Date: 20181224
  Receipt Date: 20181224
  Transmission Date: 20190205
  Serious: Yes (Hospitalization, Other)
  Sender: FDA-Public Use
  Company Number: AT-PROVELL PHARMACEUTICALS-2060535

PATIENT
  Age: 27 Year
  Sex: Female

DRUGS (13)
  1. QUETIAPINE FUMARATE. [Suspect]
     Active Substance: QUETIAPINE FUMARATE
  2. SERTRALINE [Suspect]
     Active Substance: SERTRALINE HYDROCHLORIDE
  3. EUTHYROX [Suspect]
     Active Substance: LEVOTHYROXINE SODIUM
     Indication: HYPOTHYROIDISM
  4. CLOZAPINE. [Suspect]
     Active Substance: CLOZAPINE
  5. PROTHIPENDYL [Suspect]
     Active Substance: PROTHIPENDYL
  6. RISPERDAL [Suspect]
     Active Substance: RISPERIDONE
     Route: 048
     Dates: start: 2017, end: 20170326
  7. VALPROIC ACID. [Concomitant]
     Active Substance: VALPROIC ACID
  8. RISPERDAL [Suspect]
     Active Substance: RISPERIDONE
     Dates: start: 2017, end: 20170409
  9. LORAZEPAM. [Suspect]
     Active Substance: LORAZEPAM
     Route: 048
  10. CLOZAPINE. [Suspect]
     Active Substance: CLOZAPINE
  11. RISPERDAL [Suspect]
     Active Substance: RISPERIDONE
     Dates: start: 2017, end: 20170203
  12. LORAZEPAM. [Suspect]
     Active Substance: LORAZEPAM
     Route: 048
  13. QUETIAPINE XR [Suspect]
     Active Substance: QUETIAPINE

REACTIONS (10)
  - Gastrointestinal infection [Recovered/Resolved]
  - Drug ineffective for unapproved indication [Unknown]
  - Off label use [Unknown]
  - Colitis [Recovered/Resolved]
  - Psychotic disorder [Recovered/Resolved]
  - Schizoaffective disorder bipolar type [Recovered/Resolved]
  - Mood swings [Recovering/Resolving]
  - Pyrexia [Recovered/Resolved]
  - Diarrhoea [Recovered/Resolved]
  - Feeling abnormal [Unknown]
